FAERS Safety Report 5031542-6 (Version None)
Quarter: 2006Q2

REPORT INFORMATION
  Report Type: 
  Country: None (occurrence: None)
  Receive Date: 20060616
  Receipt Date: 20060530
  Transmission Date: 20061013
  Serious: Yes (Death, Hospitalization)
  Sender: FDA-Public Use
  Company Number: US200603000326

PATIENT
  Age: 65 Year
  Sex: Male
  Weight: 108.8 kg

DRUGS (3)
  1. ZYPREXA [Suspect]
     Indication: MUSCLE SPASMS
     Dosage: 2.5 MG
     Dates: start: 20010614, end: 20020501
  2. PREDNISONE TAB [Concomitant]
  3. INSULIN [Concomitant]

REACTIONS (9)
  - ASTHMA [None]
  - DIABETES MELLITUS [None]
  - HYPERGLYCAEMIA [None]
  - MYOCARDIAL ISCHAEMIA [None]
  - OBESITY [None]
  - PNEUMONIA [None]
  - POLYDIPSIA [None]
  - POLYURIA [None]
  - WEIGHT INCREASED [None]
